FAERS Safety Report 11581804 (Version 1)
Quarter: 2015Q4

REPORT INFORMATION
  Report Type: Spontaneous
  Country: US (occurrence: US)
  Receive Date: 20151001
  Receipt Date: 20151001
  Transmission Date: 20160304
  Serious: No
  Sender: FDA-Public Use
  Company Number: US-ROCHE-642355

PATIENT
  Age: 53 Year
  Sex: Male

DRUGS (8)
  1. PEGASYS [Suspect]
     Active Substance: PEGINTERFERON ALFA-2A
     Indication: HEPATITIS C
     Dosage: FORM: PRE-FILLED SYRINGE; SUSPENDED FOR TWO WEEKS
     Route: 065
     Dates: start: 20090629, end: 20090720
  2. PEGASYS [Suspect]
     Active Substance: PEGINTERFERON ALFA-2A
     Dosage: THERAPY INTERRUPTED
     Route: 065
  3. RIBASPHERE RIBAPAK [Suspect]
     Active Substance: RIBAVIRIN
     Dosage: THERAPY INTERRUPTED
     Route: 065
  4. RIBASPHERE RIBAPAK [Suspect]
     Active Substance: RIBAVIRIN
     Route: 065
  5. RIBASPHERE RIBAPAK [Suspect]
     Active Substance: RIBAVIRIN
     Route: 065
     Dates: start: 20091021, end: 20091129
  6. PEGASYS [Suspect]
     Active Substance: PEGINTERFERON ALFA-2A
     Dosage: THERAPY INTERRUPTED
     Route: 065
  7. PEGASYS [Suspect]
     Active Substance: PEGINTERFERON ALFA-2A
     Route: 065
     Dates: start: 20091021, end: 20091129
  8. RIBASPHERE RIBAPAK [Suspect]
     Active Substance: RIBAVIRIN
     Indication: HEPATITIS C
     Dosage: FORM: PILL; THERAPY INTERRUPTED
     Route: 065

REACTIONS (17)
  - Pain of skin [Not Recovered/Not Resolved]
  - Malaise [Unknown]
  - Rash pruritic [Unknown]
  - Headache [Recovering/Resolving]
  - Vision blurred [Not Recovered/Not Resolved]
  - Pruritus [Unknown]
  - Dyspnoea [Not Recovered/Not Resolved]
  - Skin disorder [Recovered/Resolved]
  - Fatigue [Unknown]
  - Headache [Unknown]
  - Erythema [Not Recovered/Not Resolved]
  - Dizziness [Unknown]
  - Respiratory tract congestion [Unknown]
  - Pyrexia [Unknown]
  - Subcutaneous abscess [Unknown]
  - Insomnia [Unknown]
  - Rash [Unknown]

NARRATIVE: CASE EVENT DATE: 20090629
